FAERS Safety Report 4636861-0 (Version None)
Quarter: 2005Q2

REPORT INFORMATION
  Report Type: 
  Country: None (occurrence: None)
  Receive Date: 20050415
  Receipt Date: 20050407
  Transmission Date: 20051028
  Serious: Yes (Hospitalization)
  Sender: FDA-Public Use
  Company Number: US-MERCK-0504USA00895

PATIENT
  Age: 85 Year
  Sex: Female

DRUGS (1)
  1. FOSAMAX [Suspect]
     Indication: OSTEOPOROSIS
     Route: 048
     Dates: end: 20040410

REACTIONS (4)
  - FOREIGN BODY TRAUMA [None]
  - OESOPHAGEAL STENOSIS [None]
  - OESOPHAGEAL ULCER [None]
  - OESOPHAGITIS [None]
